FAERS Safety Report 20722055 (Version 1)
Quarter: 2022Q2

REPORT INFORMATION
  Report Type: Spontaneous
  Country: US (occurrence: None)
  Receive Date: 20220418
  Receipt Date: 20220418
  Transmission Date: 20220720
  Serious: Yes (Other)
  Sender: FDA-Public Use
  Company Number: None

PATIENT
  Age: 54 Year
  Sex: Female
  Weight: 63 kg

DRUGS (7)
  1. BACTRIM [Suspect]
     Active Substance: SULFAMETHOXAZOLE\TRIMETHOPRIM
     Indication: Urinary tract infection
     Dosage: FREQUENCY : TWICE A DAY;?
     Route: 048
     Dates: start: 20220404, end: 20220408
  2. ASCORBIC ACID [Concomitant]
     Active Substance: ASCORBIC ACID
  3. Vitamins D [Concomitant]
  4. ZINC [Concomitant]
  5. K [Concomitant]
  6. MCT oil [Concomitant]
  7. MAGNESIUM [Concomitant]
     Active Substance: MAGNESIUM

REACTIONS (3)
  - Urticaria [None]
  - Pruritus [None]
  - Chest discomfort [None]

NARRATIVE: CASE EVENT DATE: 20220411
